FAERS Safety Report 24920970 (Version 1)
Quarter: 2025Q1

REPORT INFORMATION
  Report Type: Report from Study
  Country: CA (occurrence: CA)
  Receive Date: 20250204
  Receipt Date: 20250204
  Transmission Date: 20250409
  Serious: Yes (Other)
  Sender: TAKEDA
  Company Number: CA-TAKEDA-2025TUS010065

PATIENT
  Sex: Female

DRUGS (3)
  1. VEDOLIZUMAB [Suspect]
     Active Substance: VEDOLIZUMAB
     Indication: Colitis ulcerative
  2. Salofalk [Concomitant]
  3. MESALAMINE [Concomitant]
     Active Substance: MESALAMINE

REACTIONS (4)
  - Haematochezia [Unknown]
  - Faeces soft [Unknown]
  - Frequent bowel movements [Unknown]
  - Abdominal pain [Unknown]
